FAERS Safety Report 6518256-8 (Version None)
Quarter: 2009Q4

REPORT INFORMATION
  Report Type: 
  Country: None (occurrence: None)
  Receive Date: 20091223
  Receipt Date: 20091223
  Transmission Date: 20100525
  Serious: Yes (Other)
  Sender: FDA-Public Use
  Company Number: None

PATIENT
  Weight: 76.2043 kg

DRUGS (4)
  1. VITAMIN D [Suspect]
     Indication: VITAMIN D DEFICIENCY
     Dosage: 1 CAPSULE 1X/WK
     Dates: start: 20090919
  2. VITAMIN D [Suspect]
     Indication: VITAMIN D DEFICIENCY
     Dosage: 1 CAPSULE 1X/WK
     Dates: start: 20090926
  3. VITAMIN D [Suspect]
     Indication: VITAMIN D DEFICIENCY
     Dosage: 1 CAPSULE 1X/WK
     Dates: start: 20091003
  4. VITAMIN D [Suspect]
     Indication: VITAMIN D DEFICIENCY
     Dosage: 1 CAPSULE 1X/WK
     Dates: start: 20091010

REACTIONS (8)
  - CONSTIPATION [None]
  - FATIGUE [None]
  - GALLBLADDER DISORDER [None]
  - GASTRITIS [None]
  - GASTROINTESTINAL PAIN [None]
  - HEADACHE [None]
  - HEART RATE INCREASED [None]
  - INSOMNIA [None]
